FAERS Safety Report 14192281 (Version 3)
Quarter: 2019Q3

REPORT INFORMATION
  Report Type: Report from Study
  Country: None (occurrence: US)
  Receive Date: 20171115
  Receipt Date: 20190903
  Transmission Date: 20191004
  Serious: Yes (Hospitalization, Other)
  Sender: FDA-Public Use
  Company Number: US-ABBVIE-17K-163-2163853-00

PATIENT
  Age: 57 Year
  Sex: Female
  Weight: 72.64 kg

DRUGS (13)
  1. HUMIRA [Suspect]
     Active Substance: ADALIMUMAB
     Indication: PSORIATIC ARTHROPATHY
     Route: 058
     Dates: start: 2008, end: 2014
  2. HUMIRA [Suspect]
     Active Substance: ADALIMUMAB
     Indication: RHEUMATOID ARTHRITIS
     Route: 058
     Dates: start: 201612
  3. HUMIRA [Suspect]
     Active Substance: ADALIMUMAB
     Indication: RHEUMATOID ARTHRITIS
  4. EQUATE [Concomitant]
     Indication: CONSTIPATION
  5. HUMIRA [Suspect]
     Active Substance: ADALIMUMAB
     Indication: PSORIATIC ARTHROPATHY
     Dosage: CITRATE FREE
     Route: 058
  6. TRAZODONE [Concomitant]
     Active Substance: TRAZODONE HYDROCHLORIDE
     Indication: INSOMNIA
  7. VITAMIN B2 [Concomitant]
     Active Substance: RIBOFLAVIN
     Indication: VITAMIN SUPPLEMENTATION
  8. OXYCODONE [Concomitant]
     Active Substance: OXYCODONE
     Indication: PAIN
  9. BABY ASPIRIN [Concomitant]
     Active Substance: ASPIRIN
     Indication: THROMBOSIS PROPHYLAXIS
  10. ASCOMP WITH CODEINE [Concomitant]
     Active Substance: ASPIRIN\BUTALBITAL\CAFFEINE\CODEINE PHOSPHATE
     Indication: MIGRAINE
  11. HUMIRA [Suspect]
     Active Substance: ADALIMUMAB
     Indication: PSORIASIS
  12. LEVOTHYROXINE. [Concomitant]
     Active Substance: LEVOTHYROXINE
     Indication: PRODUCT USED FOR UNKNOWN INDICATION
  13. HUMIRA [Suspect]
     Active Substance: ADALIMUMAB
     Indication: PSORIASIS

REACTIONS (12)
  - Dyschezia [Not Recovered/Not Resolved]
  - Abdominal pain [Not Recovered/Not Resolved]
  - Hip arthroplasty [Not Recovered/Not Resolved]
  - Migraine [Not Recovered/Not Resolved]
  - Therapeutic product effect delayed [Not Recovered/Not Resolved]
  - Peripheral nerve operation [Recovered/Resolved]
  - Ulcer haemorrhage [Not Recovered/Not Resolved]
  - Hypothyroidism [Not Recovered/Not Resolved]
  - Intestinal obstruction [Not Recovered/Not Resolved]
  - Onychomycosis [Not Recovered/Not Resolved]
  - Pain in extremity [Unknown]
  - Device defective [Unknown]

NARRATIVE: CASE EVENT DATE: 2009
